FAERS Safety Report 19481844 (Version 14)
Quarter: 2021Q3

REPORT INFORMATION
  Report Type: Report from Study
  Country: IL (occurrence: IL)
  Receive Date: 20210701
  Receipt Date: 20210907
  Transmission Date: 20211014
  Serious: Yes (Hospitalization)
  Sender: FDA-Public Use
  Company Number: IL-EISAI MEDICAL RESEARCH-EC-2021-093619

PATIENT
  Age: 80 Year
  Sex: Female
  Weight: 67.7 kg

DRUGS (18)
  1. PEMBROLIZUMAB. [Suspect]
     Active Substance: PEMBROLIZUMAB
     Route: 041
     Dates: start: 20210502, end: 20210502
  2. OPTILAST [Concomitant]
     Dates: start: 201701
  3. SYNTHROID [Concomitant]
     Active Substance: LEVOTHYROXINE SODIUM
     Dates: start: 20210118
  4. PEMBROLIZUMAB. [Suspect]
     Active Substance: PEMBROLIZUMAB
     Route: 041
     Dates: start: 20210606, end: 20210606
  5. LOSARDEX [Concomitant]
     Active Substance: LOSARTAN POTASSIUM
     Dates: start: 201901
  6. DISOTHIAZIDE [Concomitant]
     Active Substance: HYDROCHLOROTHIAZIDE
     Dates: start: 20210225
  7. LENVATINIB [Suspect]
     Active Substance: LENVATINIB
     Indication: COLORECTAL CANCER
     Route: 048
     Dates: start: 20201228, end: 20210517
  8. DURATER [Concomitant]
     Dates: start: 201701
  9. VITAMIDYNE D [Concomitant]
     Dates: start: 201901
  10. AGISPOR [Concomitant]
     Route: 061
     Dates: start: 201501
  11. GABAPENTIN. [Concomitant]
     Active Substance: GABAPENTIN
     Dates: start: 201901
  12. LERCAPRESS [LERCANIDIPINE HYDROCHLORIDE] [Concomitant]
     Active Substance: LERCANIDIPINE HYDROCHLORIDE
     Dates: start: 201901
  13. OXYCOD [OXYCODONE HYDROCHLORIDE] [Concomitant]
     Dates: start: 202001
  14. LENVATINIB [Suspect]
     Active Substance: LENVATINIB
     Route: 048
     Dates: start: 20210606, end: 20210620
  15. DERMOVATE [Concomitant]
     Active Substance: CLOBETASOL
     Dates: start: 20210218
  16. NEXIUM [Concomitant]
     Active Substance: ESOMEPRAZOLE MAGNESIUM
     Dates: start: 201001
  17. PEMBROLIZUMAB. [Suspect]
     Active Substance: PEMBROLIZUMAB
     Indication: COLORECTAL CANCER
     Route: 041
     Dates: start: 20201228, end: 20210412
  18. BROTIZOLAM [Concomitant]
     Active Substance: BROTIZOLAM
     Dates: start: 201901

REACTIONS (3)
  - Intestinal perforation [Recovered/Resolved]
  - Rectal haemorrhage [Recovered/Resolved]
  - Intestinal obstruction [Recovered/Resolved]

NARRATIVE: CASE EVENT DATE: 20210518
